FAERS Safety Report 9586864 (Version 1)
Quarter: 2013Q4

REPORT INFORMATION
  Report Type: Spontaneous
  Country: TW (occurrence: TW)
  Receive Date: 20131003
  Receipt Date: 20131003
  Transmission Date: 20140711
  Serious: Yes (Other)
  Sender: FDA-Public Use
  Company Number: TW-ASTRAZENECA-2013SE71885

PATIENT
  Sex: Female

DRUGS (5)
  1. SEROQUEL XR [Suspect]
     Indication: DEPRESSION
     Route: 048
     Dates: start: 20130214, end: 20130913
  2. SEROQUEL XR [Suspect]
     Indication: DEPRESSION
     Route: 048
     Dates: start: 20130923
  3. CYMBALTA [Concomitant]
     Route: 048
  4. ATIVAN [Concomitant]
     Dosage: 0.5 TABLET
     Route: 048
  5. YOUJET [Concomitant]
     Dosage: 1 TABLET

REACTIONS (2)
  - Dysuria [Unknown]
  - Convulsion [Unknown]
